FAERS Safety Report 8268304-2 (Version None)
Quarter: 2012Q2

REPORT INFORMATION
  Report Type: 
  Country: None (occurrence: None)
  Receive Date: 20120409
  Receipt Date: 20120329
  Transmission Date: 20120825
  Serious: Yes (Hospitalization, Other)
  Sender: FDA-Public Use
  Company Number: CH-ASTRAZENECA-2012SE21283

PATIENT
  Age: 81 Year
  Sex: Male

DRUGS (18)
  1. SEROQUEL XR [Interacting]
     Route: 048
     Dates: start: 20120316
  2. ARICEPT [Interacting]
     Indication: FRONTOTEMPORAL DEMENTIA
     Route: 048
     Dates: start: 20100101, end: 20120127
  3. TRAZODONE HCL [Suspect]
     Route: 048
     Dates: start: 20120201, end: 20120213
  4. TRAZODONE HCL [Suspect]
     Route: 048
     Dates: start: 20120305, end: 20120307
  5. SPIRIVA [Concomitant]
     Dosage: 18 MCG, 1 INHALATION, ONCE A DAY
     Route: 055
  6. DEANXIT [Concomitant]
     Dosage: DAILY, HALF OF 10 MG TABLE BETWEEN 12-24 HRS AND HALF OF 0.5 MG FLUPENTIXOL BETWEEN 15.4-50.2 HRS
     Dates: end: 20120112
  7. TRAZODONE HCL [Suspect]
     Route: 048
     Dates: start: 20120223, end: 20120301
  8. TRAZODONE HCL [Suspect]
     Route: 048
     Dates: start: 20120307, end: 20120312
  9. COLOSAN [Concomitant]
     Route: 048
  10. PRADIF T [Concomitant]
     Route: 048
  11. ENOXAPARIN SODIUM [Concomitant]
     Route: 058
  12. CYMBALTA [Concomitant]
     Route: 048
     Dates: end: 20120131
  13. MEMANTINE HYDROCHLORIDE [Suspect]
     Indication: FRONTOTEMPORAL DEMENTIA
     Route: 048
     Dates: end: 20120127
  14. SEROQUEL XR [Interacting]
     Route: 048
     Dates: start: 20100101, end: 20120203
  15. NEXIUM [Concomitant]
     Route: 048
  16. TRAZODONE HCL [Suspect]
     Route: 048
     Dates: start: 20120213, end: 20120223
  17. TRAZODONE HCL [Suspect]
     Route: 048
     Dates: start: 20120301
  18. SYMBICORT [Concomitant]
     Dosage: 200/6 MCG, 2 INHALATIONS, TWO TIMES A DAY
     Route: 055

REACTIONS (4)
  - BRONCHOPNEUMONIA [None]
  - PULMONARY SEPSIS [None]
  - DRUG INTERACTION [None]
  - BRADYCARDIA [None]
